FAERS Safety Report 5676548-9 (Version None)
Quarter: 2008Q1

REPORT INFORMATION
  Report Type: 
  Country: None (occurrence: None)
  Receive Date: 20080321
  Receipt Date: 20080321
  Transmission Date: 20080703
  Serious: Yes (Other)
  Sender: FDA-Public Use
  Company Number: None

PATIENT
  Sex: Female
  Weight: 114.3065 kg

DRUGS (1)
  1. NORVASC [Suspect]

REACTIONS (2)
  - PHARMACEUTICAL PRODUCT COMPLAINT [None]
  - RASH [None]
